FAERS Safety Report 12242293 (Version 1)
Quarter: 2016Q2

REPORT INFORMATION
  Report Type: Spontaneous
  Country: US (occurrence: US)
  Receive Date: 20160406
  Receipt Date: 20160406
  Transmission Date: 20160815
  Serious: Yes (Hospitalization, Other)
  Sender: FDA-Public Use
  Company Number: US-SCIEGEN PHARMACEUTICALS INC-2016SCILIT00055

PATIENT
  Age: 29 Year
  Sex: Male

DRUGS (3)
  1. ACETAMINOPHEN-OXYCODONE [Concomitant]
     Indication: BACK PAIN
     Dosage: UNK ((325 MG/5 MG ONCE A WEEK)
     Route: 048
  2. DOXYCYCLINE. [Suspect]
     Active Substance: DOXYCYCLINE
     Indication: ACNE
     Dosage: 100 MG, BID
     Route: 065
  3. BUPROPION HYDROCHLORIDE. [Suspect]
     Active Substance: BUPROPION HYDROCHLORIDE
     Indication: DEPRESSION
     Dosage: 150 MG, QD (SUSTAINED-RELEASE)
     Route: 065

REACTIONS (15)
  - Eosinophilia [Recovering/Resolving]
  - Liver function test abnormal [Recovering/Resolving]
  - Bilirubin conjugated increased [Recovering/Resolving]
  - Alanine aminotransferase increased [Recovering/Resolving]
  - Blood bilirubin increased [Recovering/Resolving]
  - International normalised ratio increased [Recovering/Resolving]
  - Drug-induced liver injury [Unknown]
  - Malaise [Unknown]
  - Smooth muscle antibody positive [None]
  - Jaundice [Unknown]
  - Blood immunoglobulin G increased [Recovering/Resolving]
  - Aspartate aminotransferase increased [Recovering/Resolving]
  - Blood alkaline phosphatase increased [Recovering/Resolving]
  - Hepatitis [Unknown]
  - Necrosis [Unknown]
